FAERS Safety Report 4471753-1 (Version None)
Quarter: 2004Q4

REPORT INFORMATION
  Report Type: 
  Country: None (occurrence: None)
  Receive Date: 20041006
  Receipt Date: 20040922
  Transmission Date: 20050328
  Serious: Yes (Hospitalization)
  Sender: FDA-Public Use
  Company Number: 2004235153JP

PATIENT
  Age: 68 Year
  Sex: Female

DRUGS (4)
  1. VANTIN [Suspect]
     Dosage: ORAL
     Route: 048
  2. MEDROL [Suspect]
     Dosage: ORAL
     Route: 048
  3. FAMOTIDIN NM PHARMA(FAMOTIDINE) TABLET [Suspect]
     Dosage: ORAL
     Route: 048
  4. VALPROATE SODIUM [Suspect]
     Dosage: ORAL
     Route: 048

REACTIONS (2)
  - METASTASES TO CENTRAL NERVOUS SYSTEM [None]
  - TOXIC EPIDERMAL NECROLYSIS [None]
